FAERS Safety Report 8978480 (Version 3)
Quarter: 2013Q4

REPORT INFORMATION
  Report Type: Spontaneous
  Country: US (occurrence: US)
  Receive Date: 20121221
  Receipt Date: 20131007
  Transmission Date: 20140711
  Serious: Yes (Hospitalization)
  Sender: FDA-Public Use
  Company Number: US-BIOGENIDEC-2012BI060342

PATIENT
  Age: 54 Year
  Sex: Female

DRUGS (1)
  1. AVONEX [Suspect]
     Indication: MULTIPLE SCLEROSIS
     Route: 030
     Dates: start: 20050912

REACTIONS (5)
  - Abdominal abscess [Recovered/Resolved]
  - Cholecystectomy [Recovered/Resolved]
  - Ileostomy [Recovered/Resolved]
  - Renal failure [Recovered/Resolved]
  - Back pain [Not Recovered/Not Resolved]
